FAERS Safety Report 7004684-3 (Version None)
Quarter: 2010Q3

REPORT INFORMATION
  Report Type: 
  Country: None (occurrence: None)
  Receive Date: 20100921
  Receipt Date: 20100907
  Transmission Date: 20110219
  Serious: Yes (Other)
  Sender: FDA-Public Use
  Company Number: PHHY2010CA59161

PATIENT
  Sex: Female

DRUGS (2)
  1. ACLASTA [Suspect]
     Indication: BONE DENSITY DECREASED
     Dosage: 5 MG / 100 ML ONCE A YEAR
     Route: 042
     Dates: start: 20090818
  2. VITAMIN D [Concomitant]
     Dosage: UNK

REACTIONS (3)
  - ARTHRALGIA [None]
  - NECK PAIN [None]
  - OEDEMA PERIPHERAL [None]
